FAERS Safety Report 19884149 (Version 2)
Quarter: 2025Q4

REPORT INFORMATION
  Report Type: Spontaneous
  Country: US (occurrence: None)
  Receive Date: 20210927
  Receipt Date: 20251223
  Transmission Date: 20260118
  Serious: Yes (Hospitalization, Other)
  Sender: AUROBINDO
  Company Number: US-MLMSERVICE-20210909-3093511-1

PATIENT
  Age: 32 Year
  Sex: Male

DRUGS (4)
  1. CYCLOPHOSPHAMIDE [Suspect]
     Active Substance: CYCLOPHOSPHAMIDE
     Indication: Blastic plasmacytoid dendritic cell neoplasia
     Dosage: 750 MILLIGRAM/SQ. METER, CYCLICAL
  2. DOXORUBICIN [Suspect]
     Active Substance: DOXORUBICIN
     Indication: Blastic plasmacytoid dendritic cell neoplasia
     Dosage: 50 MILLIGRAM/SQ. METER, CYCLICAL
  3. PREDNISONE [Suspect]
     Active Substance: PREDNISONE
     Indication: Blastic plasmacytoid dendritic cell neoplasia
     Dosage: 500 MILLIGRAM, CYCLICAL (100 MG ORALLY DAILY FOR 5 DAYS)
     Route: 061
  4. VINCRISTINE [Suspect]
     Active Substance: VINCRISTINE
     Indication: Blastic plasmacytoid dendritic cell neoplasia
     Dosage: 1.4 MILLIGRAM/SQ. METER, CYCLICAL (CAPPED AT 2 MG )

REACTIONS (6)
  - Disseminated intravascular coagulation [Unknown]
  - Retinal exudates [Unknown]
  - Macular oedema [Unknown]
  - Blindness [Unknown]
  - Retinal haemorrhage [Unknown]
  - Tumour lysis syndrome [Unknown]
